FAERS Safety Report 10651711 (Version 1)
Quarter: 2014Q4

REPORT INFORMATION
  Report Type: Spontaneous
  Country: FR (occurrence: FR)
  Receive Date: 20141215
  Receipt Date: 20141215
  Transmission Date: 20150529
  Serious: Yes (Other)
  Sender: FDA-Public Use
  Company Number: FR-BEH-2014047151

PATIENT
  Age: 68 Year
  Sex: Female
  Weight: 36 kg

DRUGS (13)
  1. MIANSERINE 10 MG [Concomitant]
     Route: 048
  2. CALCIDOSE VIT D [Concomitant]
  3. PRIVIGEN [Suspect]
     Active Substance: HUMAN IMMUNOGLOBULIN G
     Indication: ENCEPHALITIS AUTOIMMUNE
     Route: 042
     Dates: start: 20141112, end: 20141114
  4. BACTRIM [Concomitant]
     Active Substance: SULFAMETHOXAZOLE\TRIMETHOPRIM
  5. PREVISCAN [Concomitant]
     Active Substance: FLUINDIONE
  6. KARDEGIC [Concomitant]
     Active Substance: ASPIRIN LYSINE
  7. LOPERAMIDE [Concomitant]
     Active Substance: LOPERAMIDE
  8. BISOCE [Concomitant]
     Active Substance: BISOPROLOL
  9. CORTANSYL [Concomitant]
     Dosage: 20 MG/D
  10. SPASFON [Concomitant]
     Active Substance: PHLOROGLUCINOL
  11. LYSANXIA 10 MG [Concomitant]
  12. PANTOPRAZOLE 40 MG [Concomitant]
  13. SMECTA [Concomitant]
     Active Substance: MONTMORILLONITE

REACTIONS (4)
  - Product use issue [Unknown]
  - International normalised ratio increased [Recovered/Resolved]
  - Potentiating drug interaction [Recovered/Resolved]
  - Overdose [Recovered/Resolved]

NARRATIVE: CASE EVENT DATE: 20141115
